FAERS Safety Report 7256032-1 (Version None)
Quarter: 2011Q1

REPORT INFORMATION
  Report Type: 
  Country: None (occurrence: None)
  Receive Date: 20110129
  Receipt Date: 20100520
  Transmission Date: 20110831
  Serious: No
  Sender: FDA-Public Use
  Company Number: US-ABBOTT-10P-163-0646188-00

PATIENT
  Sex: Female
  Weight: 90.8 kg

DRUGS (4)
  1. PREDNISONE [Concomitant]
     Indication: PRODUCT USED FOR UNKNOWN INDICATION
  2. FOLIC ACID [Concomitant]
     Indication: PRODUCT USED FOR UNKNOWN INDICATION
  3. METHOTREXATE [Concomitant]
     Indication: STILL'S DISEASE ADULT ONSET
  4. HUMIRA [Suspect]
     Indication: STILL'S DISEASE ADULT ONSET
     Dates: start: 20100301

REACTIONS (3)
  - THROMBOSIS [None]
  - OROPHARYNGEAL PAIN [None]
  - EPISTAXIS [None]
